FAERS Safety Report 21723927 (Version 1)
Quarter: 2022Q4

REPORT INFORMATION
  Report Type: Spontaneous
  Country: CN (occurrence: CN)
  Receive Date: 20221213
  Receipt Date: 20221213
  Transmission Date: 20230113
  Serious: Yes (Other)
  Sender: FDA-Public Use
  Company Number: CN-NAPPMUNDI-GBR-2022-0103695

PATIENT
  Age: 71 Year
  Sex: Female
  Weight: 57.5 kg

DRUGS (1)
  1. OXYCODONE HYDROCHLORIDE [Suspect]
     Active Substance: OXYCODONE HYDROCHLORIDE
     Indication: Vulval cancer
     Dosage: 10 MILLIGRAM, Q12H
     Route: 048
     Dates: start: 20221124, end: 20221126

REACTIONS (2)
  - Mental disorder [Recovered/Resolved]
  - Incoherent [Recovered/Resolved]

NARRATIVE: CASE EVENT DATE: 20221126
